FAERS Safety Report 5235108-4 (Version None)
Quarter: 2007Q1

REPORT INFORMATION
  Report Type: 
  Country: None (occurrence: None)
  Receive Date: 20070207
  Receipt Date: 20070122
  Transmission Date: 20070707
  Serious: Yes (Other)
  Sender: FDA-Public Use
  Company Number: 2007000137

PATIENT

DRUGS (1)
  1. TARCEVA [Suspect]
     Dosage: UNK, ORAL
     Route: 048

REACTIONS (1)
  - VASCULAR ENCEPHALOPATHY [None]
